FAERS Safety Report 5403693-5 (Version None)
Quarter: 2007Q3

REPORT INFORMATION
  Report Type: 
  Country: None (occurrence: None)
  Receive Date: 20070713
  Receipt Date: 20070406
  Transmission Date: 20080115
  Serious: Yes (Life-Threatening, Hospitalization)
  Sender: FDA-Public Use
  Company Number: REM_00340_2007

PATIENT
  Age: 47 Year
  Sex: Male
  Weight: 113.2 kg

DRUGS (1)
  1. REMODULIN [Suspect]
     Indication: PULMONARY HYPERTENSION
     Dosage: 38 NG/KG/MIN (0.038 UG/KG,1 IN 1 MIN), INTRAVENOUS
     Route: 042
     Dates: start: 20050101, end: 20070301

REACTIONS (1)
  - PSEUDOMONAL SEPSIS [None]
